FAERS Safety Report 9630688 (Version 3)
Quarter: 2014Q1

REPORT INFORMATION
  Report Type: Spontaneous
  Country: BR (occurrence: BR)
  Receive Date: 20131018
  Receipt Date: 20140226
  Transmission Date: 20141002
  Serious: Yes (Other)
  Sender: FDA-Public Use
  Company Number: BR-JNJFOC-20131001471

PATIENT
  Sex: Female
  Weight: 76 kg

DRUGS (9)
  1. REMICADE [Suspect]
     Indication: RHEUMATOID ARTHRITIS
     Route: 042
     Dates: start: 20130720
  2. REMICADE [Suspect]
     Indication: RHEUMATOID ARTHRITIS
     Route: 042
     Dates: start: 201312
  3. REMICADE [Suspect]
     Indication: RHEUMATOID ARTHRITIS
     Route: 042
     Dates: start: 2010
  4. ATENOLOL [Concomitant]
     Indication: HYPERTENSION
     Route: 065
  5. PURAN T4 [Concomitant]
     Indication: THYROID DISORDER
     Route: 065
  6. CALCIUM [Concomitant]
     Indication: OSTEOPOROSIS
     Route: 065
  7. VITAMIN D [Concomitant]
     Indication: OSTEOPOROSIS
     Route: 065
  8. ESTRADIOL [Concomitant]
     Indication: HORMONE REPLACEMENT THERAPY
     Route: 065
  9. OMEPRAZOLE [Concomitant]
     Indication: GASTRIC DISORDER
     Route: 065

REACTIONS (2)
  - Fibromyalgia [Unknown]
  - Urinary tract infection [Unknown]
